FAERS Safety Report 21825615 (Version 1)
Quarter: 2023Q1

REPORT INFORMATION
  Report Type: Report from Study
  Country: US (occurrence: US)
  Receive Date: 20230105
  Receipt Date: 20230105
  Transmission Date: 20230418
  Serious: Yes (Other)
  Sender: FDA-Public Use
  Company Number: US-ABBVIE-4257940

PATIENT
  Sex: Male

DRUGS (1)
  1. HUMIRA [Suspect]
     Active Substance: ADALIMUMAB
     Indication: Product used for unknown indication
     Route: 058
     Dates: start: 20160301, end: 2021

REACTIONS (9)
  - Cataract [Unknown]
  - Osteoarthritis [Unknown]
  - Visual impairment [Unknown]
  - Anal infection [Unknown]
  - Injection site bruising [Unknown]
  - Pain [Unknown]
  - Psoriasis [Unknown]
  - Increased tendency to bruise [Unknown]
  - Adverse reaction [Unknown]

NARRATIVE: CASE EVENT DATE: 20180101
